FAERS Safety Report 8474283-5 (Version None)
Quarter: 2012Q2

REPORT INFORMATION
  Report Type: 
  Country: None (occurrence: None)
  Receive Date: 20120628
  Receipt Date: 20120620
  Transmission Date: 20120825
  Serious: Yes (Other)
  Sender: FDA-Public Use
  Company Number: US-US-EMD SERONO, INC.-232335J08USA

PATIENT
  Sex: Female
  Weight: 84 kg

DRUGS (5)
  1. IBUPROFEN (ADVIL) [Concomitant]
     Indication: PAIN
  2. REBIF [Suspect]
     Indication: MULTIPLE SCLEROSIS
     Route: 058
     Dates: start: 20060913, end: 20080227
  3. CARBATROL [Suspect]
     Indication: LOSS OF CONTROL OF LEGS
     Dates: start: 20060901, end: 20080220
  4. GABAPENTIN [Concomitant]
     Indication: NEURALGIA
     Dates: start: 20060301, end: 20080220
  5. IBUPROFEN (ADVIL) [Concomitant]
     Indication: PREMEDICATION

REACTIONS (6)
  - VOMITING [None]
  - OPTIC NEURITIS [None]
  - NAUSEA [None]
  - INSOMNIA [None]
  - HEPATOTOXICITY [None]
  - ACUTE HEPATIC FAILURE [None]
